FAERS Safety Report 16648127 (Version 3)
Quarter: 2019Q3

REPORT INFORMATION
  Report Type: Report from Study
  Country: ES (occurrence: ES)
  Receive Date: 20190730
  Receipt Date: 20190926
  Transmission Date: 20191004
  Serious: Yes (Life-Threatening, Hospitalization, Other)
  Sender: FDA-Public Use
  Company Number: ES-PFIZER INC-2019132766

PATIENT
  Age: 19 Month
  Sex: Male
  Weight: 16.7 kg

DRUGS (45)
  1. LORLATINIB [Suspect]
     Active Substance: LORLATINIB
     Dosage: 22 MG, 1X/DAY (EVERY 24 HOURS)
     Route: 048
     Dates: start: 20190225, end: 20190318
  2. LORLATINIB [Suspect]
     Active Substance: LORLATINIB
     Dosage: 20 MG, EACH 24 HOURS
     Route: 048
     Dates: start: 20190327, end: 20190328
  3. LORLATINIB [Suspect]
     Active Substance: LORLATINIB
     Dosage: 20 MG, 1X/DAY (EVERY 24 HOURS)
     Route: 048
     Dates: start: 20190331, end: 20190410
  4. SEGURIL [Concomitant]
     Active Substance: FUROSEMIDE
     Dosage: 4 MG, 2X/DAY (EACH 12 HOURS)
     Route: 048
     Dates: start: 20190224, end: 20190325
  5. SEGURIL [Concomitant]
     Active Substance: FUROSEMIDE
     Dosage: 1 MG, 2X/DAY (EVERY 12 HOURS) (FORMULATION; LIQUID)
     Route: 048
     Dates: start: 20190423, end: 20190510
  6. TRANXILIUM [Concomitant]
     Active Substance: CLORAZEPATE DIPOTASSIUM
     Dosage: 2.5 MG, 1X/DAY
     Route: 048
     Dates: start: 20190225, end: 20190323
  7. SODIUM CHLORIDE. [Concomitant]
     Active Substance: SODIUM CHLORIDE
     Dosage: 24 MEQ, 1X/DAY
     Route: 042
     Dates: start: 20190222, end: 20190226
  8. SODIUM CHLORIDE. [Concomitant]
     Active Substance: SODIUM CHLORIDE
     Dosage: 17 MEQ, 1X/DAY
     Route: 042
     Dates: start: 20190323, end: 20190324
  9. SODIUM CHLORIDE. [Concomitant]
     Active Substance: SODIUM CHLORIDE
     Dosage: 48 MEQ, 1X/DAY
     Route: 048
     Dates: start: 20190423
  10. LACOSAMIDE. [Concomitant]
     Active Substance: LACOSAMIDE
     Indication: SEIZURE PROPHYLAXIS
     Dosage: 17 UNK, 2X/DAY (EACH 12H) (FORMULATION: LIQUID)
     Route: 048
     Dates: start: 20190621
  11. LORLATINIB [Suspect]
     Active Substance: LORLATINIB
     Dosage: 12.5 MG, EACH 24 HOURS
     Route: 048
     Dates: start: 20190204, end: 20190205
  12. KEPPRA [Concomitant]
     Active Substance: LEVETIRACETAM
     Dosage: 300 MG, EACH 12 HOURS (FORMULATION; LIQUID)
     Route: 048
     Dates: start: 20190326, end: 20190723
  13. SEGURIL [Concomitant]
     Active Substance: FUROSEMIDE
     Indication: HYPONATRAEMIA
     Dosage: 3MG EVERY 12 HOURS
     Route: 048
     Dates: start: 20190201, end: 20190213
  14. TRANXILIUM [Concomitant]
     Active Substance: CLORAZEPATE DIPOTASSIUM
     Dosage: 2.5 MG, 3X/DAY
     Route: 048
     Dates: start: 20190323, end: 20190329
  15. SODIUM CHLORIDE. [Concomitant]
     Active Substance: SODIUM CHLORIDE
     Dosage: 17 MEQ, 1X/DAY
     Route: 048
     Dates: start: 20190227, end: 20190323
  16. LORLATINIB [Suspect]
     Active Substance: LORLATINIB
     Dosage: 30 MG, EACH 24 HOURS
     Route: 048
     Dates: start: 20190423, end: 20190520
  17. SEGURIL [Concomitant]
     Active Substance: FUROSEMIDE
     Dosage: 4 MG, EACH 12 HOURS (FORMULATION; LIQUID)
     Route: 048
     Dates: start: 20190214, end: 20190220
  18. OMEGA 3 NATURAL [Concomitant]
     Indication: HYPERCHOLESTEROLAEMIA
     Dosage: 2.5 ML, 1X/DAY (EVERY 24 HOURS)
     Route: 048
     Dates: start: 20190218
  19. SODIUM CHLORIDE. [Concomitant]
     Active Substance: SODIUM CHLORIDE
     Dosage: 24 MEQ, 1X/DAY
     Route: 048
     Dates: start: 20190221, end: 20190222
  20. PARACETAMOL [Concomitant]
     Active Substance: ACETAMINOPHEN
     Indication: PAIN
     Dosage: 200 MG, 4 TIMES PER DAY (FORMULATION, VIAL)
     Route: 042
     Dates: start: 20190323, end: 20190325
  21. LORLATINIB [Suspect]
     Active Substance: LORLATINIB
     Dosage: 17.5 MG, EACH 24 HOURS
     Route: 048
     Dates: start: 20190211, end: 20190217
  22. LORLATINIB [Suspect]
     Active Substance: LORLATINIB
     Dosage: 20 MG, EACH 24 HOURS
     Route: 048
     Dates: start: 20190218, end: 20190222
  23. LORLATINIB [Suspect]
     Active Substance: LORLATINIB
     Dosage: 25 MG, EACH 24 HOURS
     Route: 048
     Dates: start: 20190411, end: 20190422
  24. SEGURIL [Concomitant]
     Active Substance: FUROSEMIDE
     Dosage: 5 MG, EACH 12 HOURS (FORMULATION; LIQUID)
     Route: 048
     Dates: start: 20190326, end: 20190404
  25. SEGURIL [Concomitant]
     Active Substance: FUROSEMIDE
     Dosage: 2 MG, EACH 12 HOURS (FORMULATION; LIQUID)
     Route: 048
     Dates: start: 20190405, end: 20190422
  26. TRANXILIUM [Concomitant]
     Active Substance: CLORAZEPATE DIPOTASSIUM
     Dosage: 1.7 MG, 1X/DAY
     Route: 048
     Dates: start: 20190425
  27. SODIUM CHLORIDE. [Concomitant]
     Active Substance: SODIUM CHLORIDE
     Dosage: 24 MEQ, 1X/DAY
     Route: 048
     Dates: start: 20190325, end: 20190326
  28. FENITOINA [PHENYTOIN] [Concomitant]
     Dosage: 30 MG/12 HOURS, 2X/DAY, ENDOVENOUS
  29. LORLATINIB [Suspect]
     Active Substance: LORLATINIB
     Dosage: 15 MG, EACH 24 HOURS
     Route: 048
     Dates: start: 20190206, end: 20190210
  30. LORLATINIB [Suspect]
     Active Substance: LORLATINIB
     Dosage: 35 MG EACH 24 HOURS
     Route: 048
     Dates: start: 20190521, end: 20190620
  31. SEGURIL [Concomitant]
     Active Substance: FUROSEMIDE
     Dosage: 5 MG, 2X/DAY (EVERY 12 HOURS)  (FORMULATION; LIQUID)
     Route: 048
     Dates: start: 20190221, end: 20190222
  32. TRANXILIUM [Concomitant]
     Active Substance: CLORAZEPATE DIPOTASSIUM
     Indication: IRRITABILITY
     Dosage: 2.5 MG, EACH 24 HOURS
     Route: 048
     Dates: start: 20190202
  33. TRANXILIUM [Concomitant]
     Active Substance: CLORAZEPATE DIPOTASSIUM
     Dosage: 2.5MG EVERY 24 HOURS
     Route: 048
     Dates: start: 20190330, end: 20190425
  34. KEPPRA [Concomitant]
     Active Substance: LEVETIRACETAM
     Indication: SEIZURE PROPHYLAXIS
     Dosage: 330 MG 2X/DAY, EACH 12 HOURS (FORMULATION; LIQUID)
     Route: 048
     Dates: start: 20190129, end: 20190326
  35. KEPPRA [Concomitant]
     Active Substance: LEVETIRACETAM
     Dosage: 350 MG, 2X/DAY EACH 12 HOURS (FORMULATION; LIQUID)
     Route: 048
     Dates: start: 20190724
  36. TRANXILIUM [Concomitant]
     Active Substance: CLORAZEPATE DIPOTASSIUM
     Dosage: 2.5 MG, 1X/DAY
     Route: 048
     Dates: start: 20190208, end: 20190222
  37. OMEGA 3 NATURAL [Concomitant]
     Indication: HYPERTRIGLYCERIDAEMIA
  38. SODIUM CHLORIDE. [Concomitant]
     Active Substance: SODIUM CHLORIDE
     Indication: HYPONATRAEMIA
     Dosage: 17 MEQ, 1X/DAY
     Route: 048
     Dates: start: 20190218, end: 20190220
  39. LORLATINIB [Suspect]
     Active Substance: LORLATINIB
     Dosage: 40 MG, 1X/DAY (EVERY 24 HOURS) (LIQUID PREPARATION FROM TABLETS)
     Route: 048
     Dates: start: 20190621
  40. SODIUM CHLORIDE. [Concomitant]
     Active Substance: SODIUM CHLORIDE
     Dosage: 41 MEQ, 1X/DAY
     Route: 048
     Dates: start: 20190405, end: 20190422
  41. LORLATINIB [Suspect]
     Active Substance: LORLATINIB
     Indication: GLIOMA
     Dosage: 40 MG, DAILY (EACH 24 HOURES)
     Route: 048
     Dates: start: 20190201, end: 20190202
  42. LORLATINIB [Suspect]
     Active Substance: LORLATINIB
     Dosage: 25 MG, EACH 24 HOURS (FORMULATION; LIQUID)
     Route: 048
     Dates: start: 20190319, end: 20190322
  43. SODIUM CHLORIDE. [Concomitant]
     Active Substance: SODIUM CHLORIDE
     Dosage: 27 MEQ, 1X/DAY
     Route: 048
     Dates: start: 20190327, end: 20190330
  44. SODIUM CHLORIDE. [Concomitant]
     Active Substance: SODIUM CHLORIDE
     Dosage: 34 MEQ, 1X/DAY
     Route: 048
     Dates: start: 20190331, end: 20190404
  45. POSITON [GRAMICIDIN;NEOMYCIN SULFATE;NYSTATIN;TRIAMCINOLONE ACETONIDE] [Concomitant]
     Indication: DERMATITIS DIAPER
     Dosage: 2 MG, 2X/DAY
     Route: 061
     Dates: start: 20190218

REACTIONS (17)
  - Iron deficiency anaemia [Recovered/Resolved]
  - Hydrocephalus [Recovered/Resolved]
  - Urinary tract infection [Recovered/Resolved]
  - Hypercholesterolaemia [Not Recovered/Not Resolved]
  - Seizure [Recovered/Resolved]
  - Device malfunction [Recovered/Resolved]
  - Fall [Recovered/Resolved]
  - Proteus infection [Recovered/Resolved]
  - Diarrhoea [Recovered/Resolved]
  - Cognitive disorder [Recovered/Resolved]
  - Iron deficiency anaemia [Recovered/Resolved]
  - Vomiting [Recovered/Resolved]
  - Hydrocephalus [Recovered/Resolved]
  - Pyrexia [Recovered/Resolved]
  - Constipation [Recovered/Resolved]
  - Craniocerebral injury [Recovered/Resolved]
  - Hypertriglyceridaemia [Not Recovered/Not Resolved]

NARRATIVE: CASE EVENT DATE: 20190202
